FAERS Safety Report 5276805-4 (Version None)
Quarter: 2007Q1

REPORT INFORMATION
  Report Type: 
  Country: None (occurrence: None)
  Receive Date: 20070327
  Receipt Date: 20070316
  Transmission Date: 20070707
  Serious: Yes (Other)
  Sender: FDA-Public Use
  Company Number: GB-JNJFOC-20070304330

PATIENT
  Age: 64 Year
  Sex: Male

DRUGS (3)
  1. DURAGESIC-50 [Suspect]
     Route: 062
  2. DURAGESIC-50 [Suspect]
     Indication: LIMB INJURY
     Route: 062
  3. DICLOFENAC SODIUM [Concomitant]
     Route: 065

REACTIONS (5)
  - ANXIETY [None]
  - MUSCLE TWITCHING [None]
  - TENSION [None]
  - UNEVALUABLE EVENT [None]
  - WRONG TECHNIQUE IN DRUG USAGE PROCESS [None]
